FAERS Safety Report 8789343 (Version 2)
Quarter: 2013Q1

REPORT INFORMATION
  Report Type: Spontaneous
  Country: None (occurrence: None)
  Receive Date: 20120905
  Receipt Date: 20121005
  Transmission Date: 20140127
  Serious: Yes (Other)
  Sender: FDA-Public Use
  Company Number: AUR-APL-2012-03679

PATIENT
  Sex: Female

DRUGS (2)
  1. CITALOPRAM (CITALOPRAM) [Suspect]
     Indication: PRODUCT USED FOR UNKNOWN INDICATION
  2. PRISTIQ (DESVENLAFAXINE SUCCINATE) [Suspect]
     Indication: PRODUCT USED FOR UNKNOWN INDICATION

REACTIONS (5)
  - Blood pressure increased [None]
  - Nausea [None]
  - Dizziness [None]
  - Malaise [None]
  - Serotonin syndrome [None]
